FAERS Safety Report 7041961-4 (Version None)
Quarter: 2010Q4

REPORT INFORMATION
  Report Type: 
  Country: None (occurrence: None)
  Receive Date: 20101013
  Receipt Date: 20100401
  Transmission Date: 20110411
  Serious: No
  Sender: FDA-Public Use
  Company Number: US-ASTRAZENECA-2010SE14451

PATIENT
  Age: 55 Year
  Sex: Female
  Weight: 68 kg

DRUGS (7)
  1. SYMBICORT [Suspect]
     Indication: ASTHMA
     Dosage: 320 UG TOTAL DAILY DOSE TWO TIMES A DAY
     Route: 055
     Dates: start: 20100323
  2. SYMBICORT [Suspect]
     Indication: CHRONIC OBSTRUCTIVE PULMONARY DISEASE
     Dosage: 320 UG TOTAL DAILY DOSE TWO TIMES A DAY
     Route: 055
     Dates: start: 20100323
  3. VENTOLIN [Concomitant]
  4. SULFAMETHOXAZOLE [Concomitant]
     Dates: start: 20100330
  5. DIAZIDE [Concomitant]
  6. CITRICAL [Concomitant]
  7. ASPIRIN [Concomitant]

REACTIONS (2)
  - LIP BLISTER [None]
  - LIP SWELLING [None]
